FAERS Safety Report 19406059 (Version 8)
Quarter: 2025Q2

REPORT INFORMATION
  Report Type: Report from Study
  Country: US (occurrence: US)
  Receive Date: 20210611
  Receipt Date: 20250617
  Transmission Date: 20250716
  Serious: Yes (Hospitalization, Other)
  Sender: ABBVIE
  Company Number: US-ABBVIE-21K-163-3937700-00

PATIENT
  Sex: Female
  Weight: 95 kg

DRUGS (11)
  1. SKYRIZI [Suspect]
     Active Substance: RISANKIZUMAB-RZAA
     Indication: Psoriasis
     Dosage: FORM STRENGTH: 150 MG
     Route: 058
     Dates: start: 2017
  2. SKYRIZI [Suspect]
     Active Substance: RISANKIZUMAB-RZAA
     Indication: Psoriasis
     Dosage: FORM STRENGTH: 175 MG
     Route: 058
     Dates: start: 2017, end: 202204
  3. SKYRIZI [Suspect]
     Active Substance: RISANKIZUMAB-RZAA
     Route: 058
     Dates: end: 202402
  4. MODERNA COVID-19 VACCINE [Concomitant]
     Active Substance: ELASOMERAN
     Indication: COVID-19 immunisation
     Route: 030
     Dates: start: 20210310, end: 20210310
  5. MODERNA COVID-19 VACCINE [Concomitant]
     Active Substance: ELASOMERAN
     Indication: COVID-19 immunisation
     Route: 030
     Dates: start: 20210407, end: 20210407
  6. MODERNA COVID-19 VACCINE [Concomitant]
     Active Substance: ELASOMERAN
     Indication: COVID-19 immunisation
     Route: 030
     Dates: start: 20211130, end: 20211130
  7. DESVENLAFAXINE [Concomitant]
     Active Substance: DESVENLAFAXINE
     Indication: Depression
     Route: 065
  8. IRBESARTAN [Concomitant]
     Active Substance: IRBESARTAN
     Indication: Hypertension
     Route: 065
  9. ELIQUIS [Concomitant]
     Active Substance: APIXABAN
     Indication: Anticoagulant therapy
     Route: 065
  10. RISPERIDONE [Concomitant]
     Active Substance: RISPERIDONE
     Indication: Blood cholesterol
     Route: 065
  11. METOPROLOL [Concomitant]
     Active Substance: METOPROLOL
     Indication: Cardiac disorder
     Route: 065
     Dates: start: 20220405

REACTIONS (17)
  - Balance disorder [Recovered/Resolved]
  - Scar [Unknown]
  - Multiple sclerosis [Unknown]
  - Psoriasis [Unknown]
  - Blood potassium decreased [Recovered/Resolved]
  - Fall [Recovered/Resolved]
  - Multiple fractures [Recovered/Resolved]
  - COVID-19 [Recovered/Resolved]
  - Atrial fibrillation [Unknown]
  - Eye contusion [Recovered/Resolved]
  - Spinal operation [Unknown]
  - Stress [Not Recovered/Not Resolved]
  - Fall [Unknown]
  - Night sweats [Unknown]
  - Coronary arterial stent insertion [Recovered/Resolved]
  - Transient ischaemic attack [Unknown]
  - Rash [Unknown]

NARRATIVE: CASE EVENT DATE: 20181210
